FAERS Safety Report 9563363 (Version 1)
Quarter: 2013Q3

REPORT INFORMATION
  Report Type: Spontaneous
  Country: JP (occurrence: JP)
  Receive Date: 20130927
  Receipt Date: 20130927
  Transmission Date: 20140515
  Serious: Yes (Life-Threatening, Hospitalization)
  Sender: FDA-Public Use
  Company Number: JP-B.I. PHARMACEUTICALS,INC./RIDGEFIELD-2013-BI-30219NB

PATIENT
  Age: 89 Year
  Sex: Female

DRUGS (3)
  1. PRAZAXA [Suspect]
     Dosage: 110 MG
     Route: 048
     Dates: start: 201209
  2. PRAZAXA [Suspect]
     Dosage: 75 MG
     Route: 048
     Dates: start: 201301
  3. PRAZAXA [Suspect]
     Dosage: 220 MG
     Route: 048

REACTIONS (5)
  - Sepsis [Unknown]
  - Epilepsy [Unknown]
  - Haematochezia [Unknown]
  - Haemorrhoid operation [Unknown]
  - Colitis ischaemic [Unknown]
